FAERS Safety Report 9708931 (Version 2)
Quarter: 2014Q1

REPORT INFORMATION
  Report Type: Spontaneous
  Country: NL (occurrence: NL)
  Receive Date: 20131125
  Receipt Date: 20140211
  Transmission Date: 20141002
  Serious: Yes (Other)
  Sender: FDA-Public Use
  Company Number: PHHY2013NL125977

PATIENT
  Sex: Female

DRUGS (3)
  1. ZOMETA [Suspect]
     Indication: PLASMA CELL MYELOMA
     Dosage: UNK UKN, UNK
     Dates: start: 20130719
  2. LENALIDOMIDE [Concomitant]
     Dosage: 25 MG
  3. DEXAMETHASONE [Concomitant]
     Dosage: 40 MG

REACTIONS (2)
  - Blindness [Recovering/Resolving]
  - Vision blurred [Recovering/Resolving]
